FAERS Safety Report 12741610 (Version 1)
Quarter: 2016Q3

REPORT INFORMATION
  Report Type: Spontaneous
  Country: US (occurrence: US)
  Receive Date: 20160913
  Receipt Date: 20160913
  Transmission Date: 20161109
  Serious: Yes (Disabling)
  Sender: FDA-Public Use
  Company Number: None

PATIENT
  Age: 56 Year
  Sex: Male
  Weight: 101.61 kg

DRUGS (14)
  1. OLANZAPINE. [Suspect]
     Active Substance: OLANZAPINE
     Indication: DEPRESSION
     Dosage: 15MG 1 AT BEDTIME ONCE A DAY BY MOUTH
     Route: 048
     Dates: start: 2009, end: 20160503
  2. PSYLLUM [Concomitant]
  3. IMMUNOGLOBULIN INFUSION [Concomitant]
  4. OMEPRAZOLE. [Concomitant]
     Active Substance: OMEPRAZOLE
  5. CHOLECALCIFEROL [Concomitant]
     Active Substance: CHOLECALCIFEROL
  6. LORATADINE. [Concomitant]
     Active Substance: LORATADINE
  7. MULTIVITAMIN/MINERALS [Concomitant]
  8. ASCORBIC ACID. [Concomitant]
     Active Substance: ASCORBIC ACID
  9. VENLAFAXINE [Concomitant]
     Active Substance: VENLAFAXINE HYDROCHLORIDE
  10. MAGNESIUM OXIDE. [Concomitant]
     Active Substance: MAGNESIUM OXIDE
  11. TEA [Concomitant]
     Active Substance: TEA LEAF
  12. OLIVE LEAF [Concomitant]
  13. LORAZEPAM. [Concomitant]
     Active Substance: LORAZEPAM
  14. LECITHIN [Concomitant]
     Active Substance: LECITHIN

REACTIONS (4)
  - Insomnia [None]
  - Salivary hypersecretion [None]
  - Drug dependence [None]
  - Therapy non-responder [None]

NARRATIVE: CASE EVENT DATE: 20160506
